FAERS Safety Report 5488013-2 (Version None)
Quarter: 2007Q4

REPORT INFORMATION
  Report Type: 
  Country: None (occurrence: None)
  Receive Date: 20071012
  Receipt Date: 20071012
  Transmission Date: 20080405
  Serious: Yes (Life-Threatening, Hospitalization)
  Sender: FDA-Public Use
  Company Number: None

PATIENT
  Age: 53 Year
  Sex: Male
  Weight: 97.5234 kg

DRUGS (1)
  1. DICLOFENAC SODIUM [Suspect]
     Indication: BACK PAIN
     Dosage: 75MG 1X PO
     Route: 048
     Dates: start: 20050831, end: 20071012

REACTIONS (2)
  - ANAPHYLACTIC SHOCK [None]
  - PULSE ABSENT [None]
